FAERS Safety Report 14465775 (Version 1)
Quarter: 2018Q1

REPORT INFORMATION
  Report Type: Spontaneous
  Country: JP (occurrence: JP)
  Receive Date: 20180131
  Receipt Date: 20180131
  Transmission Date: 20180509
  Serious: Yes (Death, Hospitalization)
  Sender: FDA-Public Use
  Company Number: JP-AMGEN-JPNSP2017181775

PATIENT
  Age: 78 Year
  Sex: Male
  Weight: 55 kg

DRUGS (16)
  1. DENOTAS [Concomitant]
     Active Substance: CALCIUM CARBONATE\CHOLECALCIFEROL\MAGNESIUM CARBONATE
     Indication: METASTASES TO BONE
     Dosage: 610 MG, QD
     Route: 048
     Dates: start: 20171016
  2. BICALUTAMIDE. [Concomitant]
     Active Substance: BICALUTAMIDE
     Indication: PROSTATE CANCER
     Dosage: 80 MG, QD
     Route: 048
     Dates: start: 20170915
  3. GONAX [Concomitant]
     Active Substance: DEGARELIX
     Dosage: 80 MG, Q4WK
     Route: 058
     Dates: start: 20171016, end: 20171016
  4. COCARL [Concomitant]
     Active Substance: ACETAMINOPHEN
     Indication: PNEUMONIA LEGIONELLA
     Dosage: 400 MG, AS NECESSARY
     Route: 048
     Dates: start: 20171023
  5. COCARL [Concomitant]
     Active Substance: ACETAMINOPHEN
     Indication: PNEUMONIA PNEUMOCOCCAL
  6. LEVOFLOXACIN. [Concomitant]
     Active Substance: LEVOFLOXACIN
     Indication: PNEUMONIA LEGIONELLA
     Dosage: 250 MG, QD
     Route: 048
     Dates: start: 20171023, end: 20171023
  7. AUGMENTIN [Concomitant]
     Active Substance: AMOXICILLIN\CLAVULANATE POTASSIUM
     Indication: PNEUMONIA PNEUMOCOCCAL
  8. CRAVIT [Concomitant]
     Active Substance: LEVOFLOXACIN
     Indication: PNEUMONIA PNEUMOCOCCAL
  9. AUGMENTIN [Concomitant]
     Active Substance: AMOXICILLIN\CLAVULANATE POTASSIUM
     Indication: PNEUMONIA LEGIONELLA
     Dosage: 250 MG, TID
     Route: 048
     Dates: start: 20171024
  10. RANMARK [Suspect]
     Active Substance: DENOSUMAB
     Indication: METASTASES TO BONE
     Dosage: 120 MG, QD
     Route: 058
     Dates: start: 20171016, end: 20171016
  11. CALONAL [Concomitant]
     Active Substance: ACETAMINOPHEN
     Indication: PNEUMONIA LEGIONELLA
     Dosage: 400 MG, AS NECESSARY
     Route: 048
     Dates: start: 20171024
  12. CALONAL [Concomitant]
     Active Substance: ACETAMINOPHEN
     Indication: PNEUMONIA PNEUMOCOCCAL
  13. LEVOFLOXACIN. [Concomitant]
     Active Substance: LEVOFLOXACIN
     Indication: PNEUMONIA PNEUMOCOCCAL
  14. DENOTAS [Concomitant]
     Active Substance: CALCIUM CARBONATE\CHOLECALCIFEROL\MAGNESIUM CARBONATE
     Indication: HYPOCALCAEMIA
     Dosage: 2 DF, BID
     Route: 048
     Dates: start: 20171027, end: 20171101
  15. GONAX [Concomitant]
     Active Substance: DEGARELIX
     Indication: PROSTATE CANCER
     Dosage: 120 MG, Q4WK
     Route: 058
     Dates: start: 20170915, end: 20170915
  16. CRAVIT [Concomitant]
     Active Substance: LEVOFLOXACIN
     Indication: PNEUMONIA LEGIONELLA
     Dosage: 500 MG, QD
     Route: 048
     Dates: start: 20171024

REACTIONS (2)
  - Death [Fatal]
  - Hypocalcaemia [Not Recovered/Not Resolved]

NARRATIVE: CASE EVENT DATE: 20171026
